FAERS Safety Report 14143255 (Version 3)
Quarter: 2018Q1

REPORT INFORMATION
  Report Type: Report from Study
  Country: US (occurrence: US)
  Receive Date: 20171030
  Receipt Date: 20180301
  Transmission Date: 20180508
  Serious: Yes (Other)
  Sender: FDA-Public Use
  Company Number: PHEH2017US034891

PATIENT
  Age: 49 Year
  Sex: Female
  Weight: 164 kg

DRUGS (1)
  1. GILENYA [Suspect]
     Active Substance: FINGOLIMOD HYDROCHLORIDE
     Indication: MULTIPLE SCLEROSIS
     Dosage: 0.5 MG, QD
     Route: 048
     Dates: start: 20171025, end: 20171222

REACTIONS (6)
  - Dizziness [Unknown]
  - Fall [Unknown]
  - Hypotension [Recovered/Resolved]
  - Syncope [Unknown]
  - Sinus arrhythmia [Unknown]
  - Heart rate decreased [Unknown]

NARRATIVE: CASE EVENT DATE: 20171025
